FAERS Safety Report 17324034 (Version 4)
Quarter: 2020Q1

REPORT INFORMATION
  Report Type: Spontaneous
  Country: US (occurrence: US)
  Receive Date: 20200127
  Receipt Date: 20200225
  Transmission Date: 20200409
  Serious: Yes (Other)
  Sender: FDA-Public Use
  Company Number: US-AMGEN-USASP2020011061

PATIENT
  Age: 77 Year
  Sex: Female

DRUGS (6)
  1. VITAMINE D [Concomitant]
     Active Substance: CHOLECALCIFEROL
     Dosage: UNK
  2. TURMERIC [CURCUMA LONGA] [Concomitant]
     Active Substance: HERBALS\TURMERIC
  3. CURCUMIN [Concomitant]
     Active Substance: CURCUMIN
  4. CALCIUM [Concomitant]
     Active Substance: CALCIUM
     Dosage: UNK
  5. PROLIA [Suspect]
     Active Substance: DENOSUMAB
     Indication: OSTEOPOROSIS POSTMENOPAUSAL
     Dosage: 60 MILLIGRAM, Q6MO
     Route: 065
     Dates: start: 2019
  6. SILICA [Concomitant]
     Active Substance: SILICON DIOXIDE

REACTIONS (11)
  - Multiple fractures [Unknown]
  - Weight bearing difficulty [Unknown]
  - Pain [Unknown]
  - Toothache [Unknown]
  - Body height decreased [Unknown]
  - Condition aggravated [Unknown]
  - Urticaria [Unknown]
  - Taste disorder [Not Recovered/Not Resolved]
  - Pollakiuria [Unknown]
  - Muscle spasms [Unknown]
  - Dry mouth [Not Recovered/Not Resolved]

NARRATIVE: CASE EVENT DATE: 2019
